FAERS Safety Report 22518990 (Version 2)
Quarter: 2023Q2

REPORT INFORMATION
  Report Type: Spontaneous
  Country: US (occurrence: US)
  Receive Date: 20230605
  Receipt Date: 20230615
  Transmission Date: 20230722
  Serious: Yes (Other)
  Sender: FDA-Public Use
  Company Number: US-CIPLA LTD.-2023US02916

PATIENT

DRUGS (1)
  1. ALBUTEROL [Suspect]
     Active Substance: ALBUTEROL
     Indication: Pneumonia
     Dosage: UNK

REACTIONS (4)
  - Pneumonia [Unknown]
  - Off label use [Unknown]
  - Device delivery system issue [Unknown]
  - Device mechanical issue [Unknown]
